FAERS Safety Report 10527075 (Version 6)
Quarter: 2015Q2

REPORT INFORMATION
  Report Type: Report from Study
  Country: IL (occurrence: IL)
  Receive Date: 20141020
  Receipt Date: 20150402
  Transmission Date: 20150821
  Serious: Yes (Hospitalization)
  Sender: FDA-Public Use
  Company Number: IL-ROCHE-1474297

PATIENT
  Age: 83 Year
  Sex: Female
  Weight: 59 kg

DRUGS (31)
  1. OBINUTUZUMAB [Suspect]
     Active Substance: OBINUTUZUMAB
     Indication: CHRONIC LYMPHOCYTIC LEUKAEMIA
     Dosage: LAST DOSE PRIOR TO EVENT: 06/OCT/2014
     Route: 042
     Dates: start: 20141005
  2. ACAMOL [Concomitant]
     Active Substance: ACETAMINOPHEN
     Route: 048
     Dates: start: 20141130, end: 20141130
  3. ACAMOL [Concomitant]
     Active Substance: ACETAMINOPHEN
     Dosage: SINGLE DOSE.
     Route: 048
     Dates: start: 20141228, end: 20141228
  4. PHENERGAN [Concomitant]
     Active Substance: PROMETHAZINE HYDROCHLORIDE
     Indication: PROPHYLAXIS
     Route: 042
     Dates: start: 20141005, end: 20141005
  5. PHENERGAN [Concomitant]
     Active Substance: PROMETHAZINE HYDROCHLORIDE
     Route: 065
     Dates: start: 20141012, end: 20141012
  6. AEROVENT (ISRAEL) [Concomitant]
     Route: 065
     Dates: start: 20141116, end: 20141128
  7. FLU VACCINE [Concomitant]
     Active Substance: INFLUENZA VIRUS VACCINE
     Indication: PROPHYLAXIS
     Route: 058
     Dates: start: 20141022, end: 20141022
  8. HYDROCORT (ISRAEL) [Concomitant]
     Dosage: SINGLE DOSE.
     Route: 042
     Dates: start: 20141228, end: 20141228
  9. LANTON [Concomitant]
     Route: 048
     Dates: start: 2011
  10. ALLORIL [Concomitant]
     Route: 048
     Dates: start: 20141007
  11. SETRON (ISRAEL) [Concomitant]
     Route: 065
     Dates: start: 20141006, end: 20141006
  12. ACAMOL [Concomitant]
     Active Substance: ACETAMINOPHEN
     Route: 048
     Dates: start: 20141102, end: 20141102
  13. FUSID (ISRAEL) [Concomitant]
     Route: 042
     Dates: start: 20141005, end: 20141005
  14. BONDORMIN [Concomitant]
     Route: 048
  15. PHENERGAN [Concomitant]
     Active Substance: PROMETHAZINE HYDROCHLORIDE
     Route: 042
     Dates: start: 20141005, end: 20141005
  16. CIPRODEX (ISRAEL) [Concomitant]
     Route: 048
     Dates: start: 20141116, end: 20141128
  17. BENDAMUSTINE [Suspect]
     Active Substance: BENDAMUSTINE
     Indication: CHRONIC LYMPHOCYTIC LEUKAEMIA
     Dosage: LAST DOSE PRIOR TO EVENT: 06/OCT/2014
     Route: 042
     Dates: start: 20141005
  18. LAXADIN [Concomitant]
     Route: 048
     Dates: start: 2009
  19. SETRON (ISRAEL) [Concomitant]
     Route: 042
     Dates: start: 20141102, end: 20141103
  20. SETRON (ISRAEL) [Concomitant]
     Route: 042
     Dates: start: 20141228, end: 20141229
  21. HYDROCORT (ISRAEL) [Concomitant]
     Route: 042
     Dates: start: 20141130, end: 20141130
  22. OPTALGIN [Concomitant]
     Active Substance: METAMIZOLE
     Route: 048
     Dates: start: 20141016, end: 20141018
  23. SERETIDE [Concomitant]
     Active Substance: FLUTICASONE FUROATE\SALMETEROL XINAFOATE
     Route: 065
     Dates: start: 20141116, end: 20141128
  24. NEULASTIM [Concomitant]
     Active Substance: PEGFILGRASTIM
     Route: 065
     Dates: start: 20141007, end: 20141007
  25. ACAMOL [Concomitant]
     Active Substance: ACETAMINOPHEN
     Route: 065
     Dates: start: 20141019, end: 20141019
  26. HYDROCORT (ISRAEL) [Concomitant]
     Indication: PROPHYLAXIS
     Route: 042
     Dates: start: 20141102, end: 20141102
  27. AUGMENTIN [Concomitant]
     Active Substance: AMOXICILLIN\CLAVULANATE POTASSIUM
     Route: 048
     Dates: start: 20141102, end: 20141128
  28. SETRON (ISRAEL) [Concomitant]
     Indication: PROPHYLAXIS
     Route: 042
     Dates: start: 20141005, end: 20141005
  29. ACAMOL [Concomitant]
     Active Substance: ACETAMINOPHEN
     Dosage: SINGLE DOSE
     Route: 048
     Dates: start: 20141005, end: 20141005
  30. ACAMOL [Concomitant]
     Active Substance: ACETAMINOPHEN
     Route: 065
     Dates: start: 20141006, end: 20141006
  31. ACAMOL [Concomitant]
     Active Substance: ACETAMINOPHEN
     Route: 065
     Dates: start: 20141012, end: 20141012

REACTIONS (1)
  - Asthenia [Not Recovered/Not Resolved]

NARRATIVE: CASE EVENT DATE: 20141007
